FAERS Safety Report 8336047-2 (Version None)
Quarter: 2012Q2

REPORT INFORMATION
  Report Type: 
  Country: None (occurrence: None)
  Receive Date: 20120501
  Receipt Date: 20120501
  Transmission Date: 20120825
  Serious: Yes (Hospitalization)
  Sender: FDA-Public Use
  Company Number: None

PATIENT
  Age: 76 Year
  Sex: Female
  Weight: 98.4 kg

DRUGS (17)
  1. NEURONTIN [Concomitant]
  2. SEREVENT [Concomitant]
  3. FLUDROCORTISONE ACETATE [Concomitant]
  4. SOMA [Concomitant]
  5. CYANOCOBALAMIN [Concomitant]
  6. ULTRAM [Concomitant]
  7. LORTAB [Concomitant]
  8. GEMFIBROZIL [Concomitant]
  9. CELEXA [Concomitant]
  10. TEMAZEPAM [Concomitant]
  11. VALIUM [Concomitant]
  12. CELEBREX [Concomitant]
  13. PRILOSEC [Concomitant]
  14. LITHIUM CARBONATE [Suspect]
     Indication: DEPRESSION
     Dosage: 100MG TID PO  RECENT
     Route: 048
  15. LITHIUM CARBONATE [Suspect]
     Indication: BIPOLAR DISORDER
     Dosage: 100MG TID PO  RECENT
     Route: 048
  16. LASIX [Concomitant]
  17. FLUCONAZOLE [Concomitant]

REACTIONS (8)
  - TOXICITY TO VARIOUS AGENTS [None]
  - MUSCULOSKELETAL DISORDER [None]
  - DRUG WITHDRAWAL SYNDROME [None]
  - BRADYCARDIA [None]
  - DYSARTHRIA [None]
  - MUSCULAR WEAKNESS [None]
  - TREMOR [None]
  - BALANCE DISORDER [None]
